FAERS Safety Report 7628319-1 (Version None)
Quarter: 2011Q3

REPORT INFORMATION
  Report Type: 
  Country: None (occurrence: None)
  Receive Date: 20110714
  Receipt Date: 20110629
  Transmission Date: 20111222
  Serious: Yes (Life-Threatening)
  Sender: FDA-Public Use
  Company Number: TCI2011A03517

PATIENT
  Age: 56 Year
  Sex: Female

DRUGS (5)
  1. CEREKINON (TRIMEBUTINE MALEATE) [Concomitant]
  2. VALIXA (VALGANCICLOVIR HYDROCHLORIDE) [Concomitant]
  3. OLOPATADINE HYDROCHLORIDE [Concomitant]
  4. ACTOS [Suspect]
     Indication: TYPE 2 DIABETES MELLITUS
     Dosage: 30 MG (30 MG, 1 IN 1 D) PER ORAL
     Route: 048
     Dates: start: 20040906, end: 20110611
  5. LANSAP 400 (LANSOPRAZOLE, CLARITHROMYCIN, AMOXICILLIN) [Concomitant]

REACTIONS (2)
  - BLADDER CANCER [None]
  - HAEMATURIA [None]
